FAERS Safety Report 5497050-3 (Version None)
Quarter: 2007Q4

REPORT INFORMATION
  Report Type: 
  Country: None (occurrence: None)
  Receive Date: 20071025
  Receipt Date: 20071013
  Transmission Date: 20080405
  Serious: Yes (Other)
  Sender: FDA-Public Use
  Company Number: GB-ROCHE-525042

PATIENT
  Age: 71 Year
  Sex: Male
  Weight: 115.6 kg

DRUGS (6)
  1. ORLISTAT [Suspect]
     Indication: OBESITY
     Route: 048
     Dates: start: 20070613
  2. 1 CONCOMITANT DRUG [Concomitant]
     Dosage: DRUG REPORTED: LIPRIZOLE
     Route: 048
  3. CO-CODAMOL [Concomitant]
     Route: 048
  4. FELODIPINE [Concomitant]
     Indication: HYPERTENSION
     Route: 048
  5. 1 CONCOMITANT DRUG [Concomitant]
     Indication: HYPERTENSION
     Dosage: DRUG REPORTED: FRUESMIDE
     Route: 048
  6. 1 CONCOMITANT DRUG [Concomitant]
     Dosage: DRUG REPORTED: SOLIFENACIN
     Route: 048

REACTIONS (1)
  - DIABETES MELLITUS [None]
